FAERS Safety Report 22373712 (Version 5)
Quarter: 2024Q1

REPORT INFORMATION
  Report Type: Spontaneous
  Country: US (occurrence: US)
  Receive Date: 20230526
  Receipt Date: 20240329
  Transmission Date: 20240409
  Serious: No
  Sender: FDA-Public Use
  Company Number: US-BRISTOL-MYERS SQUIBB COMPANY-2023-074612

PATIENT
  Age: 68 Year
  Sex: Female

DRUGS (2)
  1. ORENCIA [Suspect]
     Active Substance: ABATACEPT
     Indication: SLE arthritis
     Route: 058
     Dates: end: 20240103
  2. ORENCIA [Suspect]
     Active Substance: ABATACEPT
     Indication: Autoimmune disorder

REACTIONS (7)
  - Injection site bruising [Unknown]
  - Inability to afford medication [Unknown]
  - Arthritis [Unknown]
  - Therapy interrupted [Unknown]
  - Off label use [Unknown]
  - Asthenia [Unknown]
  - Malaise [Unknown]
